FAERS Safety Report 19799810 (Version 1)
Quarter: 2021Q3

REPORT INFORMATION
  Report Type: Spontaneous
  Country: US (occurrence: US)
  Receive Date: 20210907
  Receipt Date: 20210907
  Transmission Date: 20211014
  Serious: No
  Sender: FDA-Public Use
  Company Number: US-ORGANON-O2108USA002422

PATIENT
  Sex: Female

DRUGS (5)
  1. HCG [Concomitant]
     Active Substance: GONADOTROPHIN, CHORIONIC
     Dosage: UNK
  2. FOLLISTIM AQ [Suspect]
     Active Substance: FOLLITROPIN
     Indication: INFERTILITY FEMALE
     Dosage: 75 TO 450 UNITS, QD (STRENGTH: 600IU/0.72ML)
     Route: 058
     Dates: start: 20160213
  3. PROGESTERONE. [Suspect]
     Active Substance: PROGESTERONE
     Dosage: UNK
  4. MENOPUR [Concomitant]
     Active Substance: FOLLITROPIN\LUTEINIZING HORMONE
     Dosage: UNK
  5. FOLLISTIM AQ [Suspect]
     Active Substance: FOLLITROPIN
     Indication: INFERTILITY FEMALE
     Dosage: 75 TO 450 UNITS, QD (STRENGTH: 300IU/0.36ML)
     Route: 058
     Dates: start: 20160213

REACTIONS (2)
  - Maternal exposure during pregnancy [Unknown]
  - Injection site pain [Unknown]
